FAERS Safety Report 9169861 (Version 7)
Quarter: 2014Q2

REPORT INFORMATION
  Report Type: Report from Study
  Country: US (occurrence: US)
  Receive Date: 20130319
  Receipt Date: 20140509
  Transmission Date: 20141212
  Serious: Yes (Hospitalization)
  Sender: FDA-Public Use
  Company Number: US-009507513-1303USA007753

PATIENT
  Age: 60 Year
  Sex: Female
  Weight: 65 kg

DRUGS (5)
  1. VICTRELIS [Suspect]
     Indication: CHRONIC HEPATITIS C
     Dosage: 2400 MG, UNK
     Dates: start: 20121125
  2. VICTRELIS [Suspect]
     Dosage: 2400 MG, UNK
     Dates: end: 20121215
  3. REBETOL [Suspect]
     Indication: CHRONIC HEPATITIS C
     Dosage: 600 MG, UNK
     Dates: start: 20121022, end: 20121215
  4. PEGINTERFERON ALFA-2A [Suspect]
     Indication: CHRONIC HEPATITIS C
     Dosage: 180 MICROGRAM, UNK
     Dates: start: 20121021, end: 20121215
  5. SPIRONOLACTONE [Suspect]
     Indication: PRODUCT USED FOR UNKNOWN INDICATION
     Dosage: UNK
     Dates: end: 20121215

REACTIONS (5)
  - Hyperkalaemia [Recovered/Resolved]
  - Hypertension [Recovered/Resolved]
  - Hyperkalaemia [Recovered/Resolved with Sequelae]
  - Lobar pneumonia [Not Recovered/Not Resolved]
  - Anaemia [Recovered/Resolved]
